FAERS Safety Report 9164177 (Version 1)
Quarter: 2013Q1

REPORT INFORMATION
  Report Type: Spontaneous
  Country: US (occurrence: None)
  Receive Date: 20130313
  Receipt Date: 20130313
  Transmission Date: 20140127
  Serious: No
  Sender: FDA-Public Use
  Company Number: None

PATIENT
  Age: 75 Year
  Sex: Female

DRUGS (1)
  1. PRADAXA 150 MG BOEHRINGER INGELHEIM [Suspect]
     Indication: ATRIAL FIBRILLATION
     Dates: start: 20121117, end: 20121120

REACTIONS (8)
  - Blister [None]
  - Blister [None]
  - Skin exfoliation [None]
  - Rash [None]
  - Heart rate increased [None]
  - Erythema multiforme [None]
  - Stevens-Johnson syndrome [None]
  - Drug eruption [None]
